FAERS Safety Report 13917819 (Version 2)
Quarter: 2017Q3

REPORT INFORMATION
  Report Type: Spontaneous
  Country: US (occurrence: US)
  Receive Date: 20170829
  Receipt Date: 20170913
  Transmission Date: 20171127
  Serious: Yes (Other)
  Sender: FDA-Public Use
  Company Number: US-DRREDDYS-USA/USA/17/0092869

PATIENT
  Age: 67 Year
  Sex: Male

DRUGS (4)
  1. GEMCITABINE [Suspect]
     Active Substance: GEMCITABINE\GEMCITABINE HYDROCHLORIDE
     Indication: METASTATIC NEOPLASM
     Dosage: 21-DAY CYCLE
     Route: 065
     Dates: start: 201310
  2. GEMCITABINE [Suspect]
     Active Substance: GEMCITABINE\GEMCITABINE HYDROCHLORIDE
     Indication: ADENOCARCINOMA
     Dosage: 21-DAY CYCLE
     Route: 065
     Dates: start: 201303
  3. CISPLATIN. [Suspect]
     Active Substance: CISPLATIN
     Indication: METASTATIC NEOPLASM
     Dosage: 21-DAY CYCLE
     Route: 065
     Dates: start: 201303
  4. CISPLATIN. [Suspect]
     Active Substance: CISPLATIN
     Indication: ADENOCARCINOMA

REACTIONS (4)
  - Neuropathy peripheral [Unknown]
  - Recurrent cancer [Unknown]
  - Drug ineffective [Unknown]
  - Neutropenia [Unknown]
